FAERS Safety Report 25502550 (Version 2)
Quarter: 2025Q3

REPORT INFORMATION
  Report Type: Report from Study
  Country: CA (occurrence: CA)
  Receive Date: 20250702
  Receipt Date: 20250710
  Transmission Date: 20251020
  Serious: Yes (Hospitalization)
  Sender: AMGEN
  Company Number: CA-Vifor (International) Inc.-VIT-2024-04015

PATIENT
  Age: 64 Year
  Sex: Male

DRUGS (2)
  1. AVACOPAN [Suspect]
     Active Substance: AVACOPAN
     Indication: Anti-neutrophil cytoplasmic antibody positive vasculitis
     Dosage: 30,MG,BID
     Route: 048
     Dates: start: 20240418
  2. AVACOPAN [Suspect]
     Active Substance: AVACOPAN
     Dosage: 30,MG,BID
     Route: 048

REACTIONS (2)
  - Hospitalisation [Recovering/Resolving]
  - Therapy cessation [Unknown]

NARRATIVE: CASE EVENT DATE: 20240401
